FAERS Safety Report 24913144 (Version 1)
Quarter: 2025Q1

REPORT INFORMATION
  Report Type: Spontaneous
  Country: FR (occurrence: FR)
  Receive Date: 20250201
  Receipt Date: 20250201
  Transmission Date: 20250408
  Serious: Yes (Hospitalization)
  Sender: ABBVIE
  Company Number: None

PATIENT
  Age: 79 Year
  Sex: Female
  Weight: 52 kg

DRUGS (4)
  1. DALBAVANCIN HYDROCHLORIDE [Suspect]
     Active Substance: DALBAVANCIN HYDROCHLORIDE
     Indication: Septic arthritis staphylococcal
     Route: 042
     Dates: start: 20241017, end: 20241017
  2. DALBAVANCIN HYDROCHLORIDE [Suspect]
     Active Substance: DALBAVANCIN HYDROCHLORIDE
     Indication: Septic arthritis staphylococcal
     Route: 042
     Dates: start: 20241031, end: 20241031
  3. DOXYCYCLINE [Suspect]
     Active Substance: DOXYCYCLINE
     Indication: Septic arthritis staphylococcal
     Route: 042
     Dates: start: 202409, end: 20241017
  4. DOXYCYCLINE [Suspect]
     Active Substance: DOXYCYCLINE
     Indication: Septic arthritis staphylococcal
     Dosage: 100 MG MORNING AND EVENING
     Route: 048
     Dates: start: 20241017, end: 20241218

REACTIONS (2)
  - Pancreatitis [Recovering/Resolving]
  - Inflammation [Recovering/Resolving]

NARRATIVE: CASE EVENT DATE: 20241201
